FAERS Safety Report 4545911-1 (Version None)
Quarter: 2005Q1

REPORT INFORMATION
  Report Type: 
  Country: None (occurrence: None)
  Receive Date: 20050103
  Receipt Date: 20041027
  Transmission Date: 20050727
  Serious: Yes (Hospitalization)
  Sender: FDA-Public Use
  Company Number: 206910

PATIENT
  Age: 68 Year
  Sex: Male

DRUGS (13)
  1. AVONEX [Suspect]
     Indication: MULTIPLE SCLEROSIS
     Dosage: 30 UG; QW; IM
     Route: 030
     Dates: start: 20010420, end: 20030801
  2. AVONEX [Suspect]
     Indication: MULTIPLE SCLEROSIS
     Dosage: 30 UG; QW; IM
     Route: 030
     Dates: start: 20030801, end: 20041001
  3. BACLOFEN [Concomitant]
  4. DIAZEPAM [Concomitant]
  5. FUROSEMIDE [Concomitant]
  6. NAPROXEN SODIUM [Concomitant]
  7. EXTRA STRENGTH TYLENOL [Concomitant]
  8. ASPIRIN [Concomitant]
  9. MULTIVITAMIN [Concomitant]
  10. SOLU-MEDROL [Concomitant]
  11. AMITRIPTYLINE [Concomitant]
  12. NITROFURANTOIN [Concomitant]
  13. VICODIN [Concomitant]

REACTIONS (16)
  - ABDOMINAL PAIN [None]
  - ALANINE AMINOTRANSFERASE INCREASED [None]
  - ASPARTATE AMINOTRANSFERASE INCREASED [None]
  - BILIARY DILATATION [None]
  - BLOOD ALKALINE PHOSPHATASE INCREASED [None]
  - HEPATIC CYST [None]
  - MOBILITY DECREASED [None]
  - MYOCARDIAL INFARCTION [None]
  - NEPHROLITHIASIS [None]
  - NUCLEAR MAGNETIC RESONANCE IMAGING BRAIN ABNORMAL [None]
  - OEDEMA PERIPHERAL [None]
  - RENAL DISORDER [None]
  - SEPSIS [None]
  - SINUS TACHYCARDIA [None]
  - TOOTH INFECTION [None]
  - URINARY TRACT INFECTION [None]
